FAERS Safety Report 12346467 (Version 1)
Quarter: 2016Q2

REPORT INFORMATION
  Report Type: Spontaneous
  Country: US (occurrence: None)
  Receive Date: 20160506
  Receipt Date: 20160506
  Transmission Date: 20160815
  Serious: Yes (Other)
  Sender: FDA-Public Use
  Company Number: None

PATIENT
  Age: 45 Year
  Sex: Female
  Weight: 68.04 kg

DRUGS (4)
  1. ZYFLO [Suspect]
     Active Substance: ZILEUTON
     Indication: ANAPHYLACTIC REACTION
     Route: 048
     Dates: start: 20160412
  2. VITAMIN D [Concomitant]
     Active Substance: CHOLECALCIFEROL
  3. PEPCID [Concomitant]
     Active Substance: FAMOTIDINE
  4. ALLEGRA [Concomitant]
     Active Substance: FEXOFENADINE HYDROCHLORIDE

REACTIONS (1)
  - Alopecia [None]

NARRATIVE: CASE EVENT DATE: 20160502
